FAERS Safety Report 12101482 (Version 1)
Quarter: 2016Q1

REPORT INFORMATION
  Report Type: Spontaneous
  Country: US (occurrence: US)
  Receive Date: 20160222
  Receipt Date: 20160222
  Transmission Date: 20160526
  Serious: No
  Sender: FDA-Public Use
  Company Number: US-ASTRAZENECA-2016SE12835

PATIENT
  Age: 80 Year
  Sex: Female
  Weight: 72 kg

DRUGS (2)
  1. NEXIUM 24HR [Concomitant]
     Active Substance: ESOMEPRAZOLE MAGNESIUM
  2. ESOMEPRAZOLE MAGNESIUM. [Suspect]
     Active Substance: ESOMEPRAZOLE MAGNESIUM
     Dosage: GENERIC BRAND, UNK
     Route: 048

REACTIONS (3)
  - Malaise [Unknown]
  - Feeling abnormal [Unknown]
  - Drug effect incomplete [Unknown]
